FAERS Safety Report 6522006-9 (Version None)
Quarter: 2009Q4

REPORT INFORMATION
  Report Type: 
  Country: None (occurrence: None)
  Receive Date: 20091224
  Receipt Date: 20091221
  Transmission Date: 20100525
  Serious: Yes (Death, Hospitalization)
  Sender: FDA-Public Use
  Company Number: 2009AC000116

PATIENT
  Sex: Female

DRUGS (11)
  1. DIGOXIN [Suspect]
     Dosage: 0.125 MG; PO
     Route: 048
     Dates: start: 20070101, end: 20071001
  2. LASIX [Concomitant]
  3. GLYBURIDE [Concomitant]
  4. METFORMIN [Concomitant]
  5. ASPIRIN [Concomitant]
  6. LISINOPRIL [Concomitant]
  7. DIABETA [Concomitant]
  8. ALDAACTONE [Concomitant]
  9. BENZONATATE [Concomitant]
  10. LYRICA [Concomitant]
  11. CLARITIN [Concomitant]

REACTIONS (15)
  - ASTHENIA [None]
  - CARDIAC FAILURE CONGESTIVE [None]
  - CARDIOMEGALY [None]
  - DIABETES MELLITUS [None]
  - DYSPNOEA [None]
  - ECONOMIC PROBLEM [None]
  - HYPERKALAEMIA [None]
  - HYPERTENSION [None]
  - HYPONATRAEMIA [None]
  - MITRAL VALVE INCOMPETENCE [None]
  - MULTIPLE INJURIES [None]
  - NEUROPATHY PERIPHERAL [None]
  - RENAL FAILURE [None]
  - TRICUSPID VALVE INCOMPETENCE [None]
  - VOCAL CORD DISORDER [None]
